FAERS Safety Report 24630816 (Version 1)
Quarter: 2024Q4

REPORT INFORMATION
  Report Type: Spontaneous
  Country: IL (occurrence: IL)
  Receive Date: 20241118
  Receipt Date: 20241118
  Transmission Date: 20250115
  Serious: Yes (Other)
  Sender: PFIZER
  Company Number: IL-PFIZER INC-PV202300006259

PATIENT
  Age: 37 Year
  Sex: Female

DRUGS (22)
  1. ELELYSO [Suspect]
     Active Substance: TALIGLUCERASE ALFA
     Indication: Gaucher^s disease
     Dosage: 5 VIALS
     Route: 042
     Dates: start: 20221205
  2. ELELYSO [Suspect]
     Active Substance: TALIGLUCERASE ALFA
     Dosage: 200 IU (5 VIALS)
     Route: 042
     Dates: start: 20221205, end: 20221205
  3. ELELYSO [Suspect]
     Active Substance: TALIGLUCERASE ALFA
     Dosage: 5/6 VIALS ALTERNATELY
  4. ELELYSO [Suspect]
     Active Substance: TALIGLUCERASE ALFA
     Dosage: 6 VIALS
     Route: 042
  5. ELELYSO [Suspect]
     Active Substance: TALIGLUCERASE ALFA
     Dosage: 200 IU (4 VIALS)
     Route: 042
     Dates: start: 20221205
  6. ELELYSO [Suspect]
     Active Substance: TALIGLUCERASE ALFA
     Dosage: 5/6 VIALS ALTERNATING EVERY TWO WEEKS
     Dates: start: 20230110
  7. ELELYSO [Suspect]
     Active Substance: TALIGLUCERASE ALFA
     Dosage: 5 VIALS
     Route: 042
  8. ELELYSO [Suspect]
     Active Substance: TALIGLUCERASE ALFA
     Dosage: 6 VIALS
     Route: 042
  9. ELELYSO [Suspect]
     Active Substance: TALIGLUCERASE ALFA
     Dosage: 5 VIALS
     Route: 042
  10. ELELYSO [Suspect]
     Active Substance: TALIGLUCERASE ALFA
     Dosage: 200 IU (6 VIALS)
     Route: 042
     Dates: start: 20231017
  11. ELELYSO [Suspect]
     Active Substance: TALIGLUCERASE ALFA
     Dosage: 200 IU, MONTHLY
     Route: 042
     Dates: start: 20231122
  12. ELELYSO [Suspect]
     Active Substance: TALIGLUCERASE ALFA
     Dosage: 200 IU, 6 VIALS
     Route: 042
  13. ELELYSO [Suspect]
     Active Substance: TALIGLUCERASE ALFA
     Dosage: 200 IU, 6 VIALS
     Route: 042
     Dates: start: 20240307, end: 20240307
  14. ELELYSO [Suspect]
     Active Substance: TALIGLUCERASE ALFA
     Dosage: 200 IU, 5 VIALS
     Route: 042
     Dates: start: 20240328, end: 20240328
  15. ELELYSO [Suspect]
     Active Substance: TALIGLUCERASE ALFA
     Dosage: 5 VIALS
     Route: 042
     Dates: start: 20240416, end: 20240416
  16. ELELYSO [Suspect]
     Active Substance: TALIGLUCERASE ALFA
     Dosage: 6 VIALS
     Route: 042
     Dates: start: 20240516
  17. ELELYSO [Suspect]
     Active Substance: TALIGLUCERASE ALFA
     Dosage: 5 VIALS
     Route: 042
     Dates: start: 20240609, end: 20240609
  18. ELELYSO [Suspect]
     Active Substance: TALIGLUCERASE ALFA
     Dosage: 6 VIALS
     Route: 042
     Dates: start: 20240630, end: 20240630
  19. ELELYSO [Suspect]
     Active Substance: TALIGLUCERASE ALFA
     Dosage: 5 VIALS
     Route: 042
     Dates: start: 20240718, end: 20240718
  20. ELELYSO [Suspect]
     Active Substance: TALIGLUCERASE ALFA
     Dosage: 200 IU, 6VIALS
     Route: 042
     Dates: start: 20240731, end: 20240731
  21. ELELYSO [Suspect]
     Active Substance: TALIGLUCERASE ALFA
     Dosage: 200 IU, 5 VIALS
     Route: 042
  22. ELELYSO [Suspect]
     Active Substance: TALIGLUCERASE ALFA
     Dosage: 200 IU, 6 VIALS
     Route: 042
     Dates: start: 20241112

REACTIONS (6)
  - Haemorrhage in pregnancy [Unknown]
  - Viral infection [Unknown]
  - Poor venous access [Recovered/Resolved]
  - Inappropriate schedule of product administration [Unknown]
  - Drug monitoring procedure incorrectly performed [Unknown]
  - Maternal exposure during pregnancy [Unknown]

NARRATIVE: CASE EVENT DATE: 20240101
